FAERS Safety Report 17498946 (Version 1)
Quarter: 2020Q1

REPORT INFORMATION
  Report Type: Report from Study
  Country: US (occurrence: US)
  Receive Date: 20200304
  Receipt Date: 20200304
  Transmission Date: 20200409
  Serious: No
  Sender: FDA-Public Use
  Company Number: GXBR2015US000822

PATIENT
  Age: 9 Year
  Sex: Male
  Weight: 17.5 kg

DRUGS (1)
  1. SOMATROPIN (RHGH) LYOPHILIZED POWDER [Suspect]
     Active Substance: SOMATROPIN
     Indication: GROWTH HORMONE DEFICIENCY
     Dosage: 1.1 MG, QD
     Route: 065
     Dates: start: 20130619

REACTIONS (1)
  - Arthralgia [Recovered/Resolved]

NARRATIVE: CASE EVENT DATE: 20131125
